FAERS Safety Report 6801967-4 (Version None)
Quarter: 2010Q2

REPORT INFORMATION
  Report Type: 
  Country: None (occurrence: None)
  Receive Date: 20100629
  Receipt Date: 20100617
  Transmission Date: 20101027
  Serious: Yes (Other)
  Sender: FDA-Public Use
  Company Number: DE-PFIZER INC-2010075808

PATIENT
  Age: 44 Year
  Sex: Male

DRUGS (5)
  1. DOXORUBICIN HCL [Suspect]
     Indication: ANAPLASTIC LARGE CELL LYMPHOMA T- AND NULL-CELL TYPES
     Dosage: 50 MG/M2, CYCLIC, DAY 1
     Route: 042
  2. CYCLOPHOSPHAMIDE [Suspect]
     Indication: ANAPLASTIC LARGE CELL LYMPHOMA T- AND NULL-CELL TYPES
     Dosage: 750 MG/M2, CYCLIC, DAY 1
     Route: 042
  3. VINCRISTINE [Suspect]
     Indication: ANAPLASTIC LARGE CELL LYMPHOMA T- AND NULL-CELL TYPES
     Dosage: 2 MG, CYCLIC, DAY 1
     Route: 042
  4. PREDNISONE [Suspect]
     Indication: ANAPLASTIC LARGE CELL LYMPHOMA T- AND NULL-CELL TYPES
     Dosage: 100 MG, CYCLIC, DAYS 1-5
     Route: 042
  5. FILGRASTIM [Suspect]
     Indication: BONE MARROW FAILURE
     Dosage: 5 UG/KG, DAILY BETWEEN THE CYCLES
     Route: 042

REACTIONS (1)
  - SKIN HYPERPIGMENTATION [None]
